FAERS Safety Report 14683518 (Version 1)
Quarter: 2018Q1

REPORT INFORMATION
  Report Type: Spontaneous
  Country: US (occurrence: US)
  Receive Date: 20180327
  Receipt Date: 20180327
  Transmission Date: 20180509
  Serious: No
  Sender: FDA-Public Use
  Company Number: US-PFIZER INC-2018121875

PATIENT

DRUGS (1)
  1. AMLODIPINE BESILATE [Suspect]
     Active Substance: AMLODIPINE BESYLATE
     Dosage: UNK
     Dates: start: 201711

REACTIONS (7)
  - Abdominal distension [Unknown]
  - Gait disturbance [Unknown]
  - Urticaria [Unknown]
  - Musculoskeletal discomfort [Unknown]
  - Urine output decreased [Unknown]
  - Abdominal pain upper [Unknown]
  - Constipation [Unknown]
